FAERS Safety Report 25594710 (Version 3)
Quarter: 2025Q4

REPORT INFORMATION
  Report Type: Spontaneous
  Country: US (occurrence: US)
  Receive Date: 20250723
  Receipt Date: 20251103
  Transmission Date: 20260117
  Serious: No
  Sender: SANOFI AVENTIS
  Company Number: US-SA-2025SA209545

PATIENT
  Age: 35 Year
  Sex: Male

DRUGS (5)
  1. ALTUVIIIO [Suspect]
     Active Substance: EFANESOCTOCOG ALFA
     Indication: Factor VIII deficiency
     Dosage: 3750 UNITS (3375-4125), QW
     Route: 042
     Dates: start: 202506
  2. ALTUVIIIO [Suspect]
     Active Substance: EFANESOCTOCOG ALFA
     Indication: Haemorrhage prophylaxis
     Dosage: 1875 UNITS (1688-2062), PRN
     Route: 042
     Dates: start: 2025
  3. ALTUVIIIO [Suspect]
     Active Substance: EFANESOCTOCOG ALFA
     Dosage: 1875 UNITS (1688-2062) AS NEEDED FOR BLEEDING IF LESS THAN 72 HOURS SINCE LAST DOSE
     Route: 042
     Dates: start: 202506
  4. ALTUVIIIO [Suspect]
     Active Substance: EFANESOCTOCOG ALFA
     Dosage: 3750 UNITS IF MORE THAN 72 HOURS SINCE LAST DOSE
     Route: 042
     Dates: start: 202506
  5. ALPHANATE [Concomitant]
     Active Substance: HUMAN COAGULATION FACTOR VIII/VON WILLEBRAND FACTOR COMPLEX
     Dosage: UNK

REACTIONS (2)
  - Spontaneous haemorrhage [Unknown]
  - Haemorrhage [Unknown]

NARRATIVE: CASE EVENT DATE: 20250715
